FAERS Safety Report 5277374-5 (Version None)
Quarter: 2007Q1

REPORT INFORMATION
  Report Type: 
  Country: None (occurrence: None)
  Receive Date: 20061213
  Receipt Date: 20051102
  Transmission Date: 20070707
  Serious: Yes (Hospitalization)
  Sender: FDA-Public Use
  Company Number: 2005UW16630

PATIENT
  Age: 44 Year
  Sex: Male

DRUGS (3)
  1. SEROQUEL [Suspect]
     Dosage: 1500 MG PO
     Route: 048
  2. SEROQUEL [Suspect]
     Dosage: 500 MG PO
     Route: 048
  3. COCAINE [Concomitant]

REACTIONS (1)
  - PRIAPISM [None]
